FAERS Safety Report 6271890-5 (Version None)
Quarter: 2009Q3

REPORT INFORMATION
  Report Type: 
  Country: None (occurrence: None)
  Receive Date: 20090717
  Receipt Date: 20090710
  Transmission Date: 20100115
  Serious: Yes (Hospitalization)
  Sender: FDA-Public Use
  Company Number: PHHO2009BE03226

PATIENT
  Sex: Female
  Weight: 70 kg

DRUGS (7)
  1. EXELON [Suspect]
     Indication: DEMENTIA
     Dosage: 3 MG, QD
     Route: 048
     Dates: start: 20081119, end: 20081216
  2. EXELON [Suspect]
     Dosage: 6 MG, QD
     Route: 048
     Dates: start: 20081216, end: 20090113
  3. EXELON [Suspect]
     Dosage: 3 MG, QD
     Route: 048
     Dates: start: 20090113, end: 20090210
  4. EXELON [Suspect]
     Dosage: 6 MG, QD
     Route: 048
     Dates: start: 20090210, end: 20090311
  5. EXELON [Suspect]
     Dosage: 9 MG, QD
     Route: 048
     Dates: start: 20090311
  6. NEUROBION [Concomitant]
     Indication: BACK PAIN
     Dosage: UNK
     Dates: start: 20090218, end: 20090224
  7. MOBIC [Concomitant]
     Indication: BACK PAIN
     Dosage: UNK
     Dates: start: 20090218, end: 20090410

REACTIONS (7)
  - BACK PAIN [None]
  - CONCOMITANT DISEASE PROGRESSION [None]
  - DECREASED APPETITE [None]
  - FATIGUE [None]
  - GENERAL PHYSICAL HEALTH DETERIORATION [None]
  - PAIN [None]
  - WEIGHT DECREASED [None]
